FAERS Safety Report 15002843 (Version 2)
Quarter: 2018Q3

REPORT INFORMATION
  Report Type: Spontaneous
  Country: JP (occurrence: JP)
  Receive Date: 20180612
  Receipt Date: 20180710
  Transmission Date: 20181010
  Serious: Yes (Life-Threatening, Other)
  Sender: FDA-Public Use
  Company Number: JP-ALLERGAN-1830446US

PATIENT
  Age: 76 Year
  Sex: Male

DRUGS (1)
  1. BOTOX [Suspect]
     Active Substance: ONABOTULINUMTOXINA
     Indication: FACIAL SPASM
     Dosage: UNK UNK, SINGLE
     Route: 030
     Dates: start: 20170308, end: 20170308

REACTIONS (2)
  - Decreased appetite [Unknown]
  - Gastric cancer [Unknown]

NARRATIVE: CASE EVENT DATE: 201710
